FAERS Safety Report 25785489 (Version 1)
Quarter: 2025Q3

REPORT INFORMATION
  Report Type: Spontaneous
  Country: US (occurrence: US)
  Receive Date: 20250910
  Receipt Date: 20250910
  Transmission Date: 20251021
  Serious: Yes (Hospitalization)
  Sender: CHIESI
  Company Number: US-CHIESI-2025CHF01633

PATIENT
  Age: 32 Year
  Sex: Female
  Weight: 64 kg

DRUGS (8)
  1. FERRIPROX [Suspect]
     Active Substance: DEFERIPRONE
     Indication: Haemochromatosis
     Dosage: 1500 MILLIGRAM, QD
     Route: 048
     Dates: start: 20230803
  2. FERRIPROX [Suspect]
     Active Substance: DEFERIPRONE
     Indication: Red blood cell transfusion
     Dates: start: 20200402, end: 20201010
  3. FERRIPROX [Suspect]
     Active Substance: DEFERIPRONE
     Indication: Sickle cell disease
     Dates: start: 20201010, end: 20230803
  4. FOLIC ACID [Concomitant]
     Active Substance: FOLIC ACID
     Indication: Product used for unknown indication
  5. TRAMADOL [Concomitant]
     Active Substance: TRAMADOL
     Indication: Product used for unknown indication
  6. POTASSIUM [Concomitant]
     Active Substance: POTASSIUM
     Indication: Product used for unknown indication
  7. TRAMADOL [Concomitant]
     Active Substance: TRAMADOL
     Indication: Product used for unknown indication
  8. OXYCODONE [Concomitant]
     Active Substance: OXYCODONE
     Indication: Product used for unknown indication

REACTIONS (2)
  - Sickle cell anaemia with crisis [Recovered/Resolved]
  - Off label use [Not Recovered/Not Resolved]

NARRATIVE: CASE EVENT DATE: 20230803
